FAERS Safety Report 14196560 (Version 1)
Quarter: 2017Q4

REPORT INFORMATION
  Report Type: Spontaneous
  Country: US (occurrence: US)
  Receive Date: 20171116
  Receipt Date: 20171116
  Transmission Date: 20180321
  Serious: No
  Sender: FDA-Public Use
  Company Number: US-NOVOPROD-563647

PATIENT
  Age: 67 Year
  Sex: Male

DRUGS (4)
  1. NOVOLOG MIX 70/30 [Suspect]
     Active Substance: INSULIN ASPART
     Dosage: 36 UNITS IN THE MORNING AND 48 UNITS IN THE EVENING
     Route: 058
     Dates: start: 201706
  2. NORVASC [Concomitant]
     Active Substance: AMLODIPINE BESYLATE
     Indication: TYPE 2 DIABETES MELLITUS
     Dosage: 5 MG, UNK
     Route: 048
  3. NOVOLOG MIX 70/30 [Suspect]
     Active Substance: INSULIN ASPART
     Indication: TYPE 2 DIABETES MELLITUS
     Dosage: 26 IN THE MORNING AND 36 IN THE EVENING
     Route: 058
     Dates: start: 2014, end: 201706
  4. AVAPRO [Concomitant]
     Active Substance: IRBESARTAN
     Indication: TYPE 2 DIABETES MELLITUS
     Dosage: 75 MG, UNK
     Route: 048

REACTIONS (3)
  - Rash pustular [Recovered/Resolved]
  - Glycosylated haemoglobin increased [Unknown]
  - Rash [Not Recovered/Not Resolved]

NARRATIVE: CASE EVENT DATE: 201706
